FAERS Safety Report 12074944 (Version 2)
Quarter: 2016Q1

REPORT INFORMATION
  Report Type: Spontaneous
  Country: US (occurrence: US)
  Receive Date: 20160212
  Receipt Date: 20160331
  Transmission Date: 20160526
  Serious: No
  Sender: FDA-Public Use
  Company Number: US-GLAXOSMITHKLINE-US2016016212

PATIENT
  Age: 56 Year
  Sex: Female

DRUGS (15)
  1. VENTOLIN [Suspect]
     Active Substance: ALBUTEROL SULFATE
     Indication: CHRONIC OBSTRUCTIVE PULMONARY DISEASE
     Dosage: UNK
  2. FUROSEMIDE. [Concomitant]
     Active Substance: FUROSEMIDE
  3. LEVOTHYROXINE. [Concomitant]
     Active Substance: LEVOTHYROXINE
  4. OXYGEN. [Concomitant]
     Active Substance: OXYGEN
  5. ALENDRONATE [Concomitant]
     Active Substance: ALENDRONATE SODIUM
  6. CITALOPRAM [Concomitant]
     Active Substance: CITALOPRAM HYDROBROMIDE
  7. LISINOPRIL. [Concomitant]
     Active Substance: LISINOPRIL
  8. TIZANIDINE. [Concomitant]
     Active Substance: TIZANIDINE
  9. ADVAIR DISKUS [Suspect]
     Active Substance: FLUTICASONE PROPIONATE\SALMETEROL XINAFOATE
     Indication: CHRONIC OBSTRUCTIVE PULMONARY DISEASE
     Dosage: 1 PUFF(S), BID
     Route: 055
     Dates: start: 20000201
  10. IPRATROPIUM [Concomitant]
     Active Substance: IPRATROPIUM
  11. ALBUTEROL NEBULIZER [Concomitant]
     Active Substance: ALBUTEROL
  12. ADVAIR DISKUS [Suspect]
     Active Substance: FLUTICASONE PROPIONATE\SALMETEROL XINAFOATE
     Dosage: UNK
     Dates: start: 20160120
  13. TRAMADOL. [Concomitant]
     Active Substance: TRAMADOL
  14. DALIRESP [Concomitant]
     Active Substance: ROFLUMILAST
  15. ZYRTEC [Concomitant]
     Active Substance: CETIRIZINE HYDROCHLORIDE

REACTIONS (7)
  - Lower respiratory tract congestion [Not Recovered/Not Resolved]
  - Sleep apnoea syndrome [Unknown]
  - Device use error [Unknown]
  - Dyspnoea [Not Recovered/Not Resolved]
  - Medication error [Unknown]
  - Product quality issue [Unknown]
  - Drug ineffective [Not Recovered/Not Resolved]

NARRATIVE: CASE EVENT DATE: 20160120
